FAERS Safety Report 4752348-9 (Version None)
Quarter: 2005Q3

REPORT INFORMATION
  Report Type: 
  Country: None (occurrence: None)
  Receive Date: 20050825
  Receipt Date: 20050816
  Transmission Date: 20060218
  Serious: Yes (Hospitalization)
  Sender: FDA-Public Use
  Company Number: DE-GLAXOSMITHKLINE-D0047294A

PATIENT
  Age: 75 Year
  Sex: Female

DRUGS (10)
  1. SEROXAT [Suspect]
     Indication: MAJOR DEPRESSION
     Dosage: 20MG UNKNOWN
     Route: 048
     Dates: start: 19971021
  2. AMANTADINE HCL [Suspect]
     Dosage: 100MG UNKNOWN
     Route: 048
     Dates: start: 19971119, end: 19971121
  3. NORTRILEN [Suspect]
     Route: 048
     Dates: start: 19971014
  4. LORAZEPAM [Concomitant]
     Route: 048
     Dates: start: 19971016
  5. COLFARIT [Concomitant]
     Dosage: 250MG PER DAY
     Route: 048
  6. ZANTAC [Concomitant]
     Dosage: 300MG PER DAY
     Route: 048
  7. TRIAMTERENE [Concomitant]
     Dosage: 1TAB PER DAY
     Route: 048
  8. ACC LONG [Concomitant]
     Dosage: 600MG PER DAY
     Route: 048
  9. CALCIPARINE [Concomitant]
     Dosage: 15000IU PER DAY
     Route: 065
  10. DEXAMETHASONE + NEOMYCIN + POLYMYXIN [Concomitant]
     Dosage: 1DROP PER DAY
     Route: 047

REACTIONS (11)
  - AGGRESSION [None]
  - AGITATION [None]
  - ANGER [None]
  - DELIRIUM [None]
  - DRUG INTERACTION [None]
  - DYSSTASIA [None]
  - FALL [None]
  - HALLUCINATION, VISUAL [None]
  - MEMORY IMPAIRMENT [None]
  - MOBILITY DECREASED [None]
  - PANIC ATTACK [None]
